FAERS Safety Report 10164182 (Version 1)
Quarter: 2014Q2

REPORT INFORMATION
  Report Type: Spontaneous
  Country: US (occurrence: US)
  Receive Date: 20140510
  Receipt Date: 20140510
  Transmission Date: 20141212
  Serious: Yes (Other)
  Sender: FDA-Public Use
  Company Number: US-BRISTOL-MYERS SQUIBB COMPANY-19974757

PATIENT
  Age: 37 Year
  Sex: Female

DRUGS (2)
  1. BYETTA [Suspect]
  2. CINRYZE [Suspect]
     Indication: PROPHYLAXIS
     Dosage: 2000 UNITS, EVERY 3-4 DAYS
     Dates: start: 20120830

REACTIONS (1)
  - Angioedema [Unknown]
